FAERS Safety Report 4654520-5 (Version None)
Quarter: 2005Q2

REPORT INFORMATION
  Report Type: 
  Country: None (occurrence: None)
  Receive Date: 20050504
  Receipt Date: 20050504
  Transmission Date: 20051028
  Serious: No
  Sender: FDA-Public Use
  Company Number: None

PATIENT
  Age: 80 Year
  Sex: Female
  Weight: 55.7924 kg

DRUGS (6)
  1. SUCRALFATE [Suspect]
     Indication: GASTROOESOPHAGEAL REFLUX DISEASE
     Dates: start: 20050403
  2. RANANTIDINE [Concomitant]
  3. ACIPHEX [Concomitant]
  4. VICODIN [Concomitant]
  5. CLONIDINE [Concomitant]
  6. LOVASTATIN [Concomitant]

REACTIONS (3)
  - NAUSEA [None]
  - PHARMACEUTICAL PRODUCT COMPLAINT [None]
  - THERAPEUTIC RESPONSE DECREASED [None]
